FAERS Safety Report 7179340-1 (Version None)
Quarter: 2010Q4

REPORT INFORMATION
  Report Type: 
  Country: None (occurrence: None)
  Receive Date: 20101221
  Receipt Date: 20101208
  Transmission Date: 20110411
  Serious: Yes (Other)
  Sender: FDA-Public Use
  Company Number: JP-AMGEN-JPNCT2010005589

PATIENT

DRUGS (5)
  1. PANITUMUMAB [Suspect]
     Indication: COLORECTAL CANCER METASTATIC
     Dosage: 6 MG/KG, Q2WK
     Route: 041
     Dates: start: 20100811
  2. LOXONIN [Concomitant]
     Route: 048
  3. CYTOTEC [Concomitant]
     Route: 048
  4. GASTER D [Concomitant]
     Route: 048
  5. MAGLAX [Concomitant]
     Route: 048

REACTIONS (1)
  - ACNE [None]
